FAERS Safety Report 9004564 (Version 1)
Quarter: 2013Q1

REPORT INFORMATION
  Report Type: Spontaneous
  Country: US (occurrence: None)
  Receive Date: 20130103
  Receipt Date: 20130103
  Transmission Date: 20140127
  Serious: Yes (Hospitalization, Other)
  Sender: FDA-Public Use
  Company Number: None

PATIENT
  Sex: Male
  Weight: 85.73 kg

DRUGS (4)
  1. IPILIMUMAB [Suspect]
     Indication: MALIGNANT MELANOMA
     Dosage: 916 MG -10MG/KG- EVERY 21 DAYS IV DRIP
     Route: 041
     Dates: start: 20121121, end: 20121213
  2. RADIOTHERAPY -CYBERKNIFE- [Concomitant]
  3. GLYBURIDE [Concomitant]
  4. METFORMIN [Concomitant]

REACTIONS (6)
  - Mucosal inflammation [None]
  - Nausea [None]
  - Vomiting [None]
  - Asthenia [None]
  - Fatigue [None]
  - Inguinal hernia [None]
